FAERS Safety Report 16974876 (Version 1)
Quarter: 2019Q4

REPORT INFORMATION
  Report Type: Spontaneous
  Country: US (occurrence: US)
  Receive Date: 20191030
  Receipt Date: 20191030
  Transmission Date: 20200122
  Serious: Yes (Hospitalization)
  Sender: FDA-Public Use
  Company Number: US-NOVOPROD-692588

PATIENT
  Sex: Male

DRUGS (3)
  1. NOVOLOG [Suspect]
     Active Substance: INSULIN ASPART
     Indication: DIABETES MELLITUS
     Dosage: WITH MEALS
     Route: 058
  2. VICTOZA [Suspect]
     Active Substance: LIRAGLUTIDE
     Indication: DIABETES MELLITUS
     Dosage: UNK
     Route: 058
     Dates: end: 2019
  3. TRESIBA [Suspect]
     Active Substance: INSULIN DEGLUDEC
     Indication: DIABETES MELLITUS
     Dosage: ONCE A DAY
     Route: 058

REACTIONS (4)
  - Blood creatinine increased [Unknown]
  - Intentional dose omission [Unknown]
  - Blood glucose increased [Recovered/Resolved]
  - Blood disorder [Unknown]

NARRATIVE: CASE EVENT DATE: 2019
